FAERS Safety Report 6194738-6 (Version None)
Quarter: 2009Q2

REPORT INFORMATION
  Report Type: 
  Country: None (occurrence: None)
  Receive Date: 20090515
  Receipt Date: 20090515
  Transmission Date: 20091009
  Serious: Yes (Other)
  Sender: FDA-Public Use
  Company Number: None

PATIENT
  Age: 66 Year
  Sex: Female
  Weight: 96.1626 kg

DRUGS (3)
  1. NABUMETONE [Suspect]
     Indication: FIBROMYALGIA
     Dosage: 1 TABLET TWICE A DAY PO
     Route: 048
     Dates: start: 19980101, end: 20090514
  2. NABUMETONE [Suspect]
     Indication: OSTEOARTHRITIS
     Dosage: 1 TABLET TWICE A DAY PO
     Route: 048
     Dates: start: 19980101, end: 20090514
  3. NABUMETONE [Suspect]
     Indication: SPINAL OSTEOARTHRITIS
     Dosage: 1 TABLET TWICE A DAY PO
     Route: 048
     Dates: start: 19980101, end: 20090514

REACTIONS (7)
  - DEPRESSION [None]
  - DIPLOPIA [None]
  - EYE IRRITATION [None]
  - EYE PAIN [None]
  - PSORIASIS [None]
  - SKIN DISORDER [None]
  - VISION BLURRED [None]
